FAERS Safety Report 21554023 (Version 3)
Quarter: 2022Q4

REPORT INFORMATION
  Report Type: Report from Study
  Country: US (occurrence: US)
  Receive Date: 20221104
  Receipt Date: 20221118
  Transmission Date: 20230113
  Serious: No
  Sender: FDA-Public Use
  Company Number: US-002147023-NVSC2022US247157

PATIENT
  Sex: Male

DRUGS (2)
  1. OMNITROPE [Suspect]
     Active Substance: SOMATROPIN
     Indication: Short stature
     Dosage: 1.9 MG, QD
     Route: 058
     Dates: start: 20221001
  2. OMNITROPE [Suspect]
     Active Substance: SOMATROPIN
     Dosage: 1.9 MG, (DAILY 6 DAYS WEEK)
     Route: 058
     Dates: start: 20221020

REACTIONS (3)
  - Underdose [Unknown]
  - Wrong technique in device usage process [Unknown]
  - Incorrect dose administered [Unknown]
